FAERS Safety Report 9103229 (Version 3)
Quarter: 2013Q1

REPORT INFORMATION
  Report Type: Spontaneous
  Country: JP (occurrence: JP)
  Receive Date: 20130219
  Receipt Date: 20130301
  Transmission Date: 20140127
  Serious: Yes (Life-Threatening, Hospitalization, Other)
  Sender: FDA-Public Use
  Company Number: PHHY2013JP015268

PATIENT
  Sex: Female

DRUGS (1)
  1. EXELON PATCH [Suspect]
     Indication: DEMENTIA WITH LEWY BODIES
     Dosage: 4.5 MG, UNK
     Route: 062

REACTIONS (4)
  - Sinus arrest [Recovering/Resolving]
  - Myocardial infarction [Unknown]
  - Cardiac failure congestive [Unknown]
  - Cardiac arrest [Unknown]
